FAERS Safety Report 18499804 (Version 2)
Quarter: 2020Q4

REPORT INFORMATION
  Report Type: Report from Study
  Country: None (occurrence: IT)
  Receive Date: 20201112
  Receipt Date: 20201201
  Transmission Date: 20210114
  Serious: Yes (Death)
  Sender: FDA-Public Use
  Company Number: IT-ABBVIE-20K-083-3649231-00

PATIENT
  Age: 56 Year
  Sex: Male
  Weight: 64 kg

DRUGS (2)
  1. VENETOCLAX. [Suspect]
     Active Substance: VENETOCLAX
     Indication: ACUTE MYELOID LEUKAEMIA
     Route: 048
     Dates: start: 20200525, end: 20200710
  2. DECITABINE. [Concomitant]
     Active Substance: DECITABINE
     Indication: ACUTE MYELOID LEUKAEMIA
     Dates: start: 20200622, end: 20200626

REACTIONS (2)
  - Febrile neutropenia [Fatal]
  - Sepsis [Fatal]

NARRATIVE: CASE EVENT DATE: 20200710
